FAERS Safety Report 6579607-1 (Version None)
Quarter: 2010Q1

REPORT INFORMATION
  Report Type: 
  Country: None (occurrence: None)
  Receive Date: 20100212
  Receipt Date: 20100209
  Transmission Date: 20100710
  Serious: Yes (Hospitalization)
  Sender: FDA-Public Use
  Company Number: SE-BAYER-200937741GPV

PATIENT
  Age: 75 Year
  Sex: Female
  Weight: 50 kg

DRUGS (12)
  1. NEXAVAR [Suspect]
     Indication: HEPATIC NEOPLASM MALIGNANT
     Dosage: TOTAL DAILY DOSE: 800 MG
     Route: 048
     Dates: start: 20091020, end: 20091028
  2. NEXAVAR [Suspect]
     Route: 048
     Dates: start: 20091029, end: 20091102
  3. NEXAVAR [Suspect]
     Route: 048
     Dates: start: 20100105, end: 20100124
  4. ANDAPSIN [Concomitant]
     Indication: DYSPEPSIA
     Route: 048
     Dates: start: 20090908
  5. FURADANTIN [Concomitant]
     Indication: INFECTION
     Route: 048
     Dates: start: 20091029, end: 20091103
  6. OMEPRAZOL [Concomitant]
     Indication: DYSPEPSIA
     Route: 048
     Dates: start: 19840101
  7. PLENDIL [Concomitant]
     Route: 048
     Dates: start: 20091028, end: 20091101
  8. DIMOR [Concomitant]
     Indication: DIARRHOEA
     Dates: start: 20090809
  9. RAMIPRIL [Concomitant]
     Route: 048
     Dates: start: 20100125
  10. DILTIAZEM HCL [Concomitant]
     Route: 048
     Dates: start: 20100125
  11. GLYCERYL TRINITRAT [Concomitant]
     Indication: POSTINFARCTION ANGINA
     Dates: start: 20091103
  12. METOPROLOL TARTRATE [Concomitant]
     Indication: ARRHYTHMIA
     Route: 048
     Dates: start: 20091106

REACTIONS (3)
  - ACUTE MYOCARDIAL INFARCTION [None]
  - ARRHYTHMIA [None]
  - ATRIAL FIBRILLATION [None]
